FAERS Safety Report 9099079 (Version 1)
Quarter: 2013Q1

REPORT INFORMATION
  Report Type: Spontaneous
  Country: US (occurrence: US)
  Receive Date: 20130213
  Receipt Date: 20130213
  Transmission Date: 20140127
  Serious: Yes (Other)
  Sender: FDA-Public Use
  Company Number: US-ELI_LILLY_AND_COMPANY-US201302001900

PATIENT
  Sex: Female

DRUGS (2)
  1. HUMALOG LISPRO [Suspect]
     Indication: TYPE 2 DIABETES MELLITUS
     Dosage: 45 U, TID
     Dates: start: 200911
  2. LANTUS [Concomitant]

REACTIONS (8)
  - Blindness [Not Recovered/Not Resolved]
  - Thrombosis [Unknown]
  - Eye haemorrhage [Not Recovered/Not Resolved]
  - Vision blurred [Not Recovered/Not Resolved]
  - Eye swelling [Not Recovered/Not Resolved]
  - Cataract [Unknown]
  - Drug interaction [Unknown]
  - Drug dispensing error [Recovered/Resolved]
